FAERS Safety Report 11109163 (Version 1)
Quarter: 2015Q2

REPORT INFORMATION
  Report Type: Spontaneous
  Country: SE (occurrence: SE)
  Receive Date: 20150513
  Receipt Date: 20150513
  Transmission Date: 20150821
  Serious: Yes (Other)
  Sender: FDA-Public Use
  Company Number: SE-JNJFOC-20150504203

PATIENT
  Age: 22 Year
  Sex: Male
  Weight: 62 kg

DRUGS (2)
  1. IPREN [Suspect]
     Active Substance: IBUPROFEN
     Route: 065
  2. IPREN [Suspect]
     Active Substance: IBUPROFEN
     Indication: LOCALISED INFECTION
     Dosage: 1 TABLET IN THE MORNING AND 1 TABLET IN THE AFTERNOON THE SAME DAY
     Route: 065
     Dates: start: 20150414, end: 20150416

REACTIONS (1)
  - Visual impairment [Recovered/Resolved]

NARRATIVE: CASE EVENT DATE: 20150416
